FAERS Safety Report 16337095 (Version 1)
Quarter: 2019Q2

REPORT INFORMATION
  Report Type: Spontaneous
  Country: US (occurrence: US)
  Receive Date: 20190521
  Receipt Date: 20190521
  Transmission Date: 20190711
  Serious: No
  Sender: FDA-Public Use
  Company Number: US-PFIZER INC-2019202095

PATIENT
  Age: 68 Year
  Sex: Female
  Weight: 48.53 kg

DRUGS (3)
  1. IBRANCE [Suspect]
     Active Substance: PALBOCICLIB
     Indication: BREAST CANCER
     Dosage: UNK [21 DAY ON AND 7 DAY OFF ]
  2. IBRANCE [Suspect]
     Active Substance: PALBOCICLIB
     Dosage: 150 MG, UNK
     Dates: start: 20190202, end: 20190218
  3. IBRANCE [Suspect]
     Active Substance: PALBOCICLIB
     Dosage: 100 MG, 1X/DAY, [AFTER DINNER ON FULL STOMACH]
     Route: 048
     Dates: start: 201903

REACTIONS (1)
  - White blood cell count decreased [Recovering/Resolving]

NARRATIVE: CASE EVENT DATE: 201902
